FAERS Safety Report 5031404-4 (Version None)
Quarter: 2006Q2

REPORT INFORMATION
  Report Type: 
  Country: None (occurrence: None)
  Receive Date: 20060621
  Receipt Date: 20060613
  Transmission Date: 20061013
  Serious: Yes (Other)
  Sender: FDA-Public Use
  Company Number: US-JNJFOC-20060603354

PATIENT
  Sex: Male
  Weight: 96.16 kg

DRUGS (6)
  1. TOPAMAX [Suspect]
     Indication: NEUROPATHY PERIPHERAL
     Route: 048
  2. TOPAMAX [Suspect]
     Indication: SCIATICA
     Route: 048
  3. KLONOPIN [Concomitant]
     Indication: SLEEP DISORDER THERAPY
     Route: 048
  4. WELLBUTRIN SR [Concomitant]
     Indication: DEPRESSION
     Route: 048
  5. ELAVIL [Concomitant]
  6. ZANAFLEX [Concomitant]

REACTIONS (3)
  - ANHIDROSIS [None]
  - DIZZINESS [None]
  - HEAT STROKE [None]
